FAERS Safety Report 7060543-1 (Version None)
Quarter: 2010Q4

REPORT INFORMATION
  Report Type: 
  Country: None (occurrence: None)
  Receive Date: 20101025
  Receipt Date: 20101012
  Transmission Date: 20110411
  Serious: Yes (Hospitalization)
  Sender: FDA-Public Use
  Company Number: US-ELI_LILLY_AND_COMPANY-US201008007149

PATIENT
  Sex: Female

DRUGS (12)
  1. FORTEO [Suspect]
     Dosage: 20 UG, DAILY (1/D)
     Route: 065
  2. PRILOSEC [Concomitant]
  3. SYNTHROID [Concomitant]
  4. ASPIRIN [Concomitant]
  5. RANEXA [Concomitant]
  6. TRAZODONE [Concomitant]
  7. ZOCOR [Concomitant]
  8. CELEXA [Concomitant]
  9. ULTRAM [Concomitant]
  10. LOPRESSOR [Concomitant]
  11. CENTRUM SILVER [Concomitant]
  12. MOTRIN [Concomitant]

REACTIONS (4)
  - CHOLECYSTECTOMY [None]
  - GASTRITIS [None]
  - PAIN [None]
  - SPINAL COLUMN STENOSIS [None]
